FAERS Safety Report 9675136 (Version 1)
Quarter: 2013Q4

REPORT INFORMATION
  Report Type: Spontaneous
  Country: US (occurrence: None)
  Receive Date: 20131105
  Receipt Date: 20131105
  Transmission Date: 20140711
  Serious: Yes (Death)
  Sender: FDA-Public Use
  Company Number: 2013P1020488

PATIENT
  Sex: 0

DRUGS (1)
  1. EPINEPHRINE [Suspect]

REACTIONS (4)
  - Arrhythmia [None]
  - Cardiac arrest [None]
  - Drug administration error [None]
  - Incorrect route of drug administration [None]
